FAERS Safety Report 7391737-3 (Version None)
Quarter: 2011Q2

REPORT INFORMATION
  Report Type: 
  Country: None (occurrence: None)
  Receive Date: 20110404
  Receipt Date: 20110324
  Transmission Date: 20111010
  Serious: Yes (Other)
  Sender: FDA-Public Use
  Company Number: US-PFIZER INC-2011066072

PATIENT
  Sex: Female

DRUGS (1)
  1. DIFLUCAN [Suspect]
     Dosage: UNK
     Route: 048

REACTIONS (7)
  - DRUG INEFFECTIVE [None]
  - OESOPHAGEAL INFECTION [None]
  - WEIGHT DECREASED [None]
  - LUNG INFECTION [None]
  - PAIN IN EXTREMITY [None]
  - CHILLS [None]
  - FOOD CRAVING [None]
